FAERS Safety Report 9524186 (Version 1)
Quarter: 2013Q3

REPORT INFORMATION
  Report Type: Spontaneous
  Country: IL (occurrence: IL)
  Receive Date: 20130916
  Receipt Date: 20130916
  Transmission Date: 20140515
  Serious: Yes (Other)
  Sender: FDA-Public Use
  Company Number: IL-JNJFOC-20130903841

PATIENT
  Age: 47 Year
  Sex: Female

DRUGS (1)
  1. REMICADE [Suspect]
     Indication: CROHN^S DISEASE
     Dosage: STOPPED ON AN UNSPECIFIED DATE IN LAST MAY (UNSPECIFIED YEAR)
     Route: 042

REACTIONS (1)
  - Psoriatic arthropathy [Unknown]
